FAERS Safety Report 21259057 (Version 2)
Quarter: 2022Q4

REPORT INFORMATION
  Report Type: Spontaneous
  Country: US (occurrence: US)
  Receive Date: 20220826
  Receipt Date: 20221201
  Transmission Date: 20230113
  Serious: Yes (Other)
  Sender: FDA-Public Use
  Company Number: US-JNJFOC-20220846645

PATIENT
  Sex: Male

DRUGS (2)
  1. DARZALEX [Suspect]
     Active Substance: DARATUMUMAB
     Indication: Plasma cell myeloma
     Route: 042
     Dates: start: 20220820
  2. DARZALEX [Suspect]
     Active Substance: DARATUMUMAB
     Route: 042
     Dates: start: 20220821

REACTIONS (1)
  - Haemoglobin decreased [Unknown]
